FAERS Safety Report 12059769 (Version 2)
Quarter: 2016Q1

REPORT INFORMATION
  Report Type: Report from Study
  Country: KP (occurrence: KR)
  Receive Date: 20160210
  Receipt Date: 20160217
  Transmission Date: 20160526
  Serious: Yes (Other)
  Sender: FDA-Public Use
  Company Number: PHHY2016KR017124

PATIENT
  Age: 44 Year
  Sex: Female

DRUGS (15)
  1. HYDRINE//HYDROXYCARBAMIDE [Concomitant]
     Indication: PLATELET COUNT INCREASED
     Dosage: 1500 MG, UNK
     Route: 048
     Dates: start: 20150712, end: 20150719
  2. LANSTON [Concomitant]
     Active Substance: LANSOPRAZOLE
     Indication: DYSPEPSIA
     Dosage: 15 MG, UNK
     Route: 048
     Dates: start: 20150724, end: 20150828
  3. ASPIRIN. [Concomitant]
     Active Substance: ASPIRIN
     Indication: ANTIPLATELET THERAPY
     Dosage: 100 MG, UNK
     Route: 048
     Dates: start: 20150722, end: 20150803
  4. GELMA [Concomitant]
     Indication: DYSPEPSIA
     Dosage: 3 PACK
     Route: 048
     Dates: start: 20150724, end: 20150803
  5. TAZIME [Concomitant]
     Indication: PYREXIA
     Dosage: 6 G, UNK
     Route: 042
     Dates: start: 20150719, end: 20150720
  6. TASIGNA [Suspect]
     Active Substance: NILOTINIB
     Dosage: 400 MG, QD
     Route: 048
     Dates: start: 20150825
  7. ISEPAMICIN [Concomitant]
     Active Substance: ISEPAMICIN
     Indication: PYREXIA
     Dosage: 200 MG, UNK
     Route: 042
     Dates: start: 20150719, end: 20150727
  8. LASIX [Concomitant]
     Active Substance: FUROSEMIDE
     Indication: FLUID IMBALANCE
     Dosage: 20 MG, UNK
     Route: 042
     Dates: start: 20150713, end: 20150728
  9. TASIGNA [Suspect]
     Active Substance: NILOTINIB
     Indication: CHRONIC MYELOID LEUKAEMIA
     Dosage: 600 MG, QD
     Route: 048
     Dates: start: 20150717, end: 20150818
  10. ITOPRIDE HCL [Concomitant]
     Indication: DYSPEPSIA
     Dosage: 150 MG, UNK
     Route: 048
     Dates: start: 20150721, end: 20150803
  11. LASIX [Concomitant]
     Active Substance: FUROSEMIDE
     Indication: OEDEMA
  12. CURAN [Concomitant]
     Indication: DYSPEPSIA
     Dosage: 300 MG, UNK
     Route: 048
     Dates: start: 20150721, end: 20150723
  13. AGRYLIN [Concomitant]
     Active Substance: ANAGRELIDE HYDROCHLORIDE
     Indication: THROMBOCYTOSIS
     Dosage: 4 MG, UNK
     Route: 048
     Dates: start: 20150714, end: 20150723
  14. SEVELAMER HYDROCHLORIDE [Concomitant]
     Active Substance: SEVELAMER HYDROCHLORIDE
     Indication: HYPERCALCAEMIA
     Dosage: 1600 MG, UNK
     Route: 048
     Dates: start: 20150712, end: 20150803
  15. INFLUENZA VIRUS VACCINE [Concomitant]
     Active Substance: INFLUENZA VIRUS VACCINE
     Indication: ANTIVIRAL PROPHYLAXIS
     Dosage: 0.5 UNK, UNK
     Route: 030
     Dates: start: 20151013, end: 20151013

REACTIONS (2)
  - Amylase increased [Recovered/Resolved]
  - Lipase increased [Recovered/Resolved]

NARRATIVE: CASE EVENT DATE: 20150818
